FAERS Safety Report 5374129-8 (Version None)
Quarter: 2007Q2

REPORT INFORMATION
  Report Type: 
  Country: None (occurrence: None)
  Receive Date: 20070627
  Receipt Date: 20070607
  Transmission Date: 20071010
  Serious: Yes (Other)
  Sender: FDA-Public Use
  Company Number: VNL_00618_2007

PATIENT
  Age: 67 Year
  Sex: Male

DRUGS (2)
  1. APO-GO (APOMORPHINE HYDROCHLORIDE) [Suspect]
     Indication: PARKINSON'S DISEASE
     Dosage: (78 MG QD (6 MG/HOUR FOR 13 HOURS PER DAY) SUBCUTANEOUS)
     Route: 058
     Dates: start: 20060101, end: 20070101
  2. MADOPAR /00349201/ (UNKNOWN) [Concomitant]

REACTIONS (3)
  - ANOREXIA [None]
  - ASTHENIA [None]
  - HAEMOLYTIC ANAEMIA [None]
